FAERS Safety Report 10715858 (Version 1)
Quarter: 2015Q1

REPORT INFORMATION
  Report Type: Report from Study
  Country: US (occurrence: None)
  Receive Date: 20150109
  Receipt Date: 20150109
  Transmission Date: 20150721
  Serious: Yes (Hospitalization)
  Sender: FDA-Public Use
  Company Number: 2013PROUSA03289

PATIENT
  Age: 64 Year
  Sex: Male
  Weight: 83.9 kg

DRUGS (9)
  1. PROVENGE [Suspect]
     Active Substance: SIPULEUCEL-T
     Indication: PROSTATE CANCER METASTATIC
     Dosage: 250 ML, SINGLE?
     Dates: start: 20130912, end: 20130912
  2. BICALUTAMIDE. [Concomitant]
     Active Substance: BICALUTAMIDE
  3. TOVIAZ [Concomitant]
     Active Substance: FESOTERODINE FUMARATE
  4. NITROFURANTOIN MONOHYDRATE/MACROCRYSTALS (NITROFURANTOIN MONOHYDRATE) [Concomitant]
  5. LISINOPRIL. [Concomitant]
     Active Substance: LISINOPRIL
  6. DILTIAZEM (DILTIAZEM HYDROCHLORIDE) (DILTIAZEM HYDROCHLORIDE) [Concomitant]
     Active Substance: DILTIAZEM
  7. CYMBALTA [Concomitant]
     Active Substance: DULOXETINE HYDROCHLORIDE
  8. KETOROLAC TROMETHALINE [Concomitant]
  9. TRELSTAR LA (TRIPTORELIN EMBONATE) [Concomitant]

REACTIONS (2)
  - Anaemia [None]
  - Urinary tract infection [None]

NARRATIVE: CASE EVENT DATE: 20131105
